FAERS Safety Report 7288117-8 (Version None)
Quarter: 2011Q1

REPORT INFORMATION
  Report Type: 
  Country: None (occurrence: None)
  Receive Date: 20110211
  Receipt Date: 20110203
  Transmission Date: 20110831
  Serious: Yes (Other)
  Sender: FDA-Public Use
  Company Number: US-BAYER-2011-012257

PATIENT
  Sex: Female
  Weight: 60 kg

DRUGS (3)
  1. MIDOL MENSTRUAL COMPLETE FORMULA [Suspect]
     Dosage: 2 DF, BID
     Dates: start: 20110203, end: 20110203
  2. IBUPROFEN [Concomitant]
     Dosage: UNK UNK, IRR
  3. UNCODEABLE ^UNCLASSIFIABLE^ [Concomitant]
     Dosage: UNK UNK, IRR

REACTIONS (8)
  - DYSPNOEA [None]
  - CLUMSINESS [None]
  - HEART RATE INCREASED [None]
  - NAUSEA [None]
  - DIZZINESS [None]
  - HYPERTENSION [None]
  - DYSKINESIA [None]
  - HYPERSENSITIVITY [None]
